FAERS Safety Report 6361224-X (Version None)
Quarter: 2009Q3

REPORT INFORMATION
  Report Type: 
  Country: None (occurrence: None)
  Receive Date: 20090918
  Receipt Date: 20090908
  Transmission Date: 20100115
  Serious: Yes (Life-Threatening, Hospitalization)
  Sender: FDA-Public Use
  Company Number: GB-PFIZER INC-2009265415

PATIENT
  Age: 64 Year

DRUGS (2)
  1. SOMATROPIN [Suspect]
     Indication: GROWTH HORMONE DEFICIENCY
     Dosage: 0.4 MG, 1X/DAY
     Dates: start: 20000101, end: 20080424
  2. OMEPRAZOLE [Concomitant]
     Dosage: UNK
     Dates: start: 20060427

REACTIONS (1)
  - COLON CANCER [None]
